FAERS Safety Report 9228170 (Version 5)
Quarter: 2013Q3

REPORT INFORMATION
  Report Type: Spontaneous
  Country: US (occurrence: US)
  Receive Date: 20130412
  Receipt Date: 20130912
  Transmission Date: 20140515
  Serious: Yes (Hospitalization, Other)
  Sender: FDA-Public Use
  Company Number: US-ROCHE-1039536

PATIENT
  Age: 43 Year
  Sex: Female
  Weight: 65 kg

DRUGS (2)
  1. ACCUTANE [Suspect]
     Indication: PRODUCT USED FOR UNKNOWN INDICATION
     Route: 065
     Dates: start: 199506, end: 199511
  2. YASMIN [Concomitant]
     Indication: CONTRACEPTION

REACTIONS (3)
  - Colitis ulcerative [Unknown]
  - Depression [Unknown]
  - Small intestinal obstruction [Unknown]
